FAERS Safety Report 26054434 (Version 1)
Quarter: 2025Q4

REPORT INFORMATION
  Report Type: Spontaneous
  Country: RU (occurrence: RU)
  Receive Date: 20251117
  Receipt Date: 20251117
  Transmission Date: 20260117
  Serious: Yes (Life-Threatening, Hospitalization, Other)
  Sender: FRESENIUS KABI
  Company Number: RU-FreseniusKabi-FK202515343

PATIENT
  Age: 4 Year
  Sex: Male
  Weight: 14 kg

DRUGS (9)
  1. PROPOFOL [Suspect]
     Active Substance: PROPOFOL
     Indication: General anaesthesia
     Dosage: 30+30MG?FORM: INTRAVENOUS EMULSION
     Route: 042
     Dates: start: 20250727, end: 20250727
  2. SEVOFLURANE [Suspect]
     Active Substance: SEVOFLURANE
     Indication: General anaesthesia
     Dosage: SINGLE DOSE -6+4+4+4?FORM: LIQUID FOR INHALATION
     Route: 055
     Dates: start: 20250727, end: 20250727
  3. ROCURONIUM BROMIDE [Suspect]
     Active Substance: ROCURONIUM BROMIDE
     Indication: General anaesthesia
     Dosage: SINGLE DOSE-15?FORM: INTRAVENOUS SOLUTION
     Route: 042
     Dates: start: 20250727, end: 20250727
  4. TRANEXAMIC ACID [Suspect]
     Active Substance: TRANEXAMIC ACID
     Indication: Product used for unknown indication
     Dosage: SINGLE DOSE 225?FORM: INTRAVENOUS SOLUTION
     Route: 042
     Dates: start: 20250727, end: 20250727
  5. ACETAMINOPHEN [Suspect]
     Active Substance: ACETAMINOPHEN
     Indication: Anaesthesia
     Dosage: SINGLE DOSE 225?FORM: SOLUTION FOR INFUSION
     Route: 042
     Dates: start: 20250727, end: 20250727
  6. CHLOROPYRAMINE [Suspect]
     Active Substance: CHLOROPYRAMINE
     Indication: Product used for unknown indication
     Dosage: SINGLE DOSE 10?FORM: INTRAVENOUS AND INTRAMUSCULAR SOLUTION
     Route: 042
     Dates: start: 20250727, end: 20250727
  7. AMPICILLIN AND SULBACTAM [Suspect]
     Active Substance: AMPICILLIN SODIUM\SULBACTAM SODIUM
     Indication: Product used for unknown indication
     Dosage: SINGLE DOSE 750?FORM: POWDER FOR SOLUTION FOR INTRAVENOUS AND INTRAMUSCULAR INJECTION
     Route: 042
     Dates: start: 20250727, end: 20250727
  8. SODIUM CHLORIDE [Suspect]
     Active Substance: SODIUM CHLORIDE
     Indication: Product used for unknown indication
     Dosage: SINGLE DOSE 250?FORM: SOLUTION FOR INFUSION
     Route: 042
     Dates: start: 20250727, end: 20250727
  9. ARTICAINE\EPINEPHRINE [Suspect]
     Active Substance: ARTICAINE\EPINEPHRINE
     Indication: Anaesthesia
     Dosage: SINGLE DOSE: 0.3?FORM: SOLUTION FOR INJECTION
     Route: 042
     Dates: start: 20250727, end: 20250727

REACTIONS (2)
  - Subcutaneous emphysema [Unknown]
  - Cardiac arrest [Unknown]

NARRATIVE: CASE EVENT DATE: 20250727
